FAERS Safety Report 23863512 (Version 1)
Quarter: 2024Q2

REPORT INFORMATION
  Report Type: Report from Study
  Country: DE (occurrence: DE)
  Receive Date: 20240516
  Receipt Date: 20240516
  Transmission Date: 20240716
  Serious: Yes (Hospitalization)
  Sender: FDA-Public Use
  Company Number: DE-002147023-NVSC2021DE034547

PATIENT
  Sex: Female

DRUGS (19)
  1. METHOTREXATE [Suspect]
     Active Substance: METHOTREXATE
     Indication: Product used for unknown indication
     Dosage: UNK, (15 UNK)
     Route: 065
     Dates: start: 20200220, end: 202004
  2. METHOTREXATE [Suspect]
     Active Substance: METHOTREXATE
     Indication: Product used for unknown indication
     Dosage: UNK, (7.5 UNK), LAST ADMIN DATE : ASKU
     Route: 065
     Dates: start: 20230620
  3. METHOTREXATE [Suspect]
     Active Substance: METHOTREXATE
     Indication: Product used for unknown indication
     Dosage: UNK, (15 UNK), LAST ADMIN DATE : ASKU
     Route: 065
     Dates: start: 20200610
  4. METHOTREXATE [Suspect]
     Active Substance: METHOTREXATE
     Indication: Product used for unknown indication
     Dosage: UNK, (12.5 UNK), LAST ADMIN DATE : ASKU
     Route: 065
     Dates: start: 20211221
  5. METHOTREXATE [Suspect]
     Active Substance: METHOTREXATE
     Indication: Product used for unknown indication
     Dosage: UNK, (15 UNK), LAST ADMIN DATE : ASKU
     Route: 065
     Dates: start: 20210630
  6. METHOTREXATE [Suspect]
     Active Substance: METHOTREXATE
     Indication: Product used for unknown indication
     Dosage: UNK, (10 UNK), LAST ADMIN DATE : ASKU
     Route: 065
     Dates: start: 20221207
  7. METHOTREXATE [Suspect]
     Active Substance: METHOTREXATE
     Indication: Product used for unknown indication
     Dosage: UNK, (15 UNK FROM 09.2019)
     Route: 065
     Dates: start: 20191002, end: 202001
  8. METHOTREXATE [Suspect]
     Active Substance: METHOTREXATE
     Indication: Product used for unknown indication
     Dosage: UNK, (10 UNK FROM 10.2020), LAST ADMIN DATE : ASKU
     Route: 065
     Dates: start: 20210118
  9. METHOTREXATE [Suspect]
     Active Substance: METHOTREXATE
     Indication: Product used for unknown indication
     Dosage: UNK, (10 UNK), LAST ADMIN DATE : ASKU
     Route: 065
     Dates: start: 20220707
  10. METHOTREXATE [Suspect]
     Active Substance: METHOTREXATE
     Indication: Product used for unknown indication
     Dosage: UNK, (15 UNK)
     Route: 065
     Dates: start: 20190729, end: 201908
  11. HYRIMOZ [Suspect]
     Active Substance: ADALIMUMAB-ADAZ
     Indication: Rheumatoid arthritis
     Dosage: 40 MG, LAST ADMIN DATE : ASKU
     Route: 065
     Dates: start: 20220601
  12. HYRIMOZ [Suspect]
     Active Substance: ADALIMUMAB-ADAZ
     Indication: Rheumatoid arthritis
     Dosage: 40 MG, LAST ADMIN DATE : ASKU
     Route: 065
     Dates: start: 20230516
  13. HYRIMOZ [Suspect]
     Active Substance: ADALIMUMAB-ADAZ
     Indication: Rheumatoid arthritis
     Dosage: 40 MG, LAST ADMIN DATE : ASKU
     Route: 065
     Dates: start: 20210114
  14. HYRIMOZ [Suspect]
     Active Substance: ADALIMUMAB-ADAZ
     Indication: Rheumatoid arthritis
     Dosage: 40 MG
     Route: 065
     Dates: start: 20200220, end: 202004
  15. HYRIMOZ [Suspect]
     Active Substance: ADALIMUMAB-ADAZ
     Indication: Rheumatoid arthritis
     Dosage: 40 MG, LAST ADMIN DATE : ASKU
     Route: 065
     Dates: start: 20210415
  16. HYRIMOZ [Suspect]
     Active Substance: ADALIMUMAB-ADAZ
     Indication: Rheumatoid arthritis
     Dosage: 40 MG, LAST ADMIN DATE : ASKU
     Route: 065
     Dates: start: 20211004
  17. HYRIMOZ [Suspect]
     Active Substance: ADALIMUMAB-ADAZ
     Indication: Rheumatoid arthritis
     Dosage: 40 MG, LAST ADMIN DATE : ASKU
     Route: 065
     Dates: start: 20221109
  18. HYRIMOZ [Suspect]
     Active Substance: ADALIMUMAB-ADAZ
     Indication: Rheumatoid arthritis
     Dosage: 40 MG, LAST ADMIN DATE : ASKU
     Route: 065
     Dates: start: 20231016
  19. HYRIMOZ [Suspect]
     Active Substance: ADALIMUMAB-ADAZ
     Indication: Rheumatoid arthritis
     Dosage: UNK, FIRST ADMIN AND LAST ADMIN DATE : ASKU
     Route: 065

REACTIONS (8)
  - Uterine leiomyoma [Unknown]
  - Gastrointestinal infection [Recovered/Resolved]
  - Uterine leiomyoma [Unknown]
  - Gastrointestinal infection [Recovered/Resolved]
  - Influenza like illness [Recovered/Resolved]
  - Arthropod bite [Recovered/Resolved]
  - Gastrointestinal infection [Recovered/Resolved]
  - Uterine polyp [Unknown]

NARRATIVE: CASE EVENT DATE: 20200315
